FAERS Safety Report 20239108 (Version 1)
Quarter: 2021Q4

REPORT INFORMATION
  Report Type: Report from Study
  Country: US (occurrence: US)
  Receive Date: 20211228
  Receipt Date: 20211228
  Transmission Date: 20220304
  Serious: No
  Sender: FDA-Public Use
  Company Number: US-BIONICAL EMAS-2021ETO000205

PATIENT

DRUGS (2)
  1. ALKINDI SPRINKLE [Suspect]
     Active Substance: HYDROCORTISONE
     Indication: Adrenal insufficiency
     Dosage: 1 MG, QD, EVERY MORNING
     Route: 048
     Dates: start: 20211207
  2. ALKINDI SPRINKLE [Suspect]
     Active Substance: HYDROCORTISONE
     Dosage: 0.5 MG, BID, EVERY AFTERNOON AND EVENING
     Route: 048
     Dates: start: 20211207

REACTIONS (4)
  - Retching [Recovered/Resolved]
  - Incorrect dose administered [Unknown]
  - Abnormal faeces [Unknown]
  - Infantile spitting up [Unknown]

NARRATIVE: CASE EVENT DATE: 20210101
